FAERS Safety Report 8173741-0 (Version None)
Quarter: 2012Q1

REPORT INFORMATION
  Report Type: 
  Country: None (occurrence: None)
  Receive Date: 20120224
  Receipt Date: 20120210
  Transmission Date: 20120608
  Serious: Yes (Hospitalization, Other)
  Sender: FDA-Public Use
  Company Number: CIP11001746

PATIENT
  Age: 68 Year
  Sex: Female
  Weight: 81.2 kg

DRUGS (22)
  1. DIOVAN [Concomitant]
  2. PROTONIX [Concomitant]
  3. TIGAN [Concomitant]
  4. CITRACAL /00751520/ (CALCIUM CITRATE) [Concomitant]
  5. ACTONEL [Suspect]
     Indication: OSTEOPOROSIS
     Dosage: 35 MG, ORAL
     Route: 048
  6. ELIDEL [Concomitant]
  7. PREDNISONE TAB [Concomitant]
  8. CELEXA	/00582602/ (CITALOPRAM HYDROBROMIDE) [Concomitant]
  9. FOSAMAX [Suspect]
     Indication: OSTEOPOROSIS
     Dosage: 70 MG, ORAL, 70 MG, ONCE WEEKLY,ORAL
     Route: 048
     Dates: start: 20060517
  10. FOSAMAX [Suspect]
     Indication: OSTEOPOROSIS
     Dosage: 70 MG, ORAL, 70 MG, ONCE WEEKLY,ORAL
     Route: 048
     Dates: start: 20090201
  11. FOSAMAX [Suspect]
     Indication: OSTEOPOROSIS
     Dosage: 70 MG, ORAL, 70 MG, ONCE WEEKLY,ORAL
     Route: 048
     Dates: start: 20010101
  12. EFFEXOR XR [Concomitant]
  13. FUROSEMIDE [Concomitant]
  14. POTASSIUM CHLORIDE [Concomitant]
  15. NORVASC [Concomitant]
  16. ALENDRONATE SODIUM [Suspect]
     Indication: OSTEOPOROSIS
     Dosage: 70MG, ORAL
     Route: 048
     Dates: start: 20090423, end: 20090701
  17. VITAMIN C /00008001/ (ASCORBIC ACID) [Concomitant]
  18. LIPITOR [Concomitant]
  19. ZELNORM /01470301/ (TEGASEROD) [Concomitant]
  20. ALLEGRA [Concomitant]
  21. BONIVA [Suspect]
     Indication: OSTEOPOROSIS
     Dosage: 150 MG, ORAL
     Route: 048
     Dates: start: 20090713, end: 20091001
  22. ZADITOR /00495201/ (KETOTIFEN) [Concomitant]

REACTIONS (22)
  - JOINT EFFUSION [None]
  - NAUSEA [None]
  - BLOOD PRESSURE INCREASED [None]
  - PATHOLOGICAL FRACTURE [None]
  - INSOMNIA [None]
  - MUSCLE STRAIN [None]
  - FRACTURE DISPLACEMENT [None]
  - HAEMOGLOBIN DECREASED [None]
  - OEDEMA PERIPHERAL [None]
  - MEDICAL DEVICE PAIN [None]
  - GAIT DISTURBANCE [None]
  - MEDICAL DEVICE COMPLICATION [None]
  - PAIN IN EXTREMITY [None]
  - GAIT DEVIATION [None]
  - PROCEDURAL HAEMORRHAGE [None]
  - DIZZINESS [None]
  - MALAISE [None]
  - FALL [None]
  - PROCEDURAL PAIN [None]
  - GROIN PAIN [None]
  - FEMUR FRACTURE [None]
  - BACK PAIN [None]
